FAERS Safety Report 6383408-7 (Version None)
Quarter: 2009Q4

REPORT INFORMATION
  Report Type: 
  Country: None (occurrence: None)
  Receive Date: 20091001
  Receipt Date: 20090918
  Transmission Date: 20100525
  Serious: Yes (Hospitalization)
  Sender: FDA-Public Use
  Company Number: FR-ALLERGAN-0911048US

PATIENT
  Age: 68 Year
  Sex: Male

DRUGS (14)
  1. TROSPIUM CHLORIDE [Suspect]
     Indication: DRUG USE FOR UNKNOWN INDICATION
     Dosage: 20 MG, BID
     Route: 048
     Dates: start: 20090422, end: 20090617
  2. FUNGIZONE [Suspect]
     Indication: DRUG USE FOR UNKNOWN INDICATION
     Dosage: 500 MG, TID
     Route: 048
     Dates: start: 20090610, end: 20090617
  3. DAKTARIN [Suspect]
     Indication: DRUG USE FOR UNKNOWN INDICATION
     Dosage: UNK
     Route: 061
     Dates: start: 20090610, end: 20090617
  4. ZYPREXA [Concomitant]
     Dosage: 7.5 MG, QD
     Dates: start: 20040101
  5. DEROXAT [Concomitant]
     Dosage: 20 MG, BID
     Dates: start: 20040101
  6. XANAX [Concomitant]
     Dosage: 0.25 MG, QD
  7. SULFARLEM S 25 [Concomitant]
     Dosage: UNK
  8. ZANIDIP [Concomitant]
     Dosage: 20 MG, QD
     Dates: start: 20070101
  9. NEBILOX [Concomitant]
     Dosage: 5 MG, QD
     Dates: start: 20070101
  10. FORTZAAR [Concomitant]
     Dosage: 100/25 MG
     Dates: start: 20070101
  11. PRAVADUAL [Concomitant]
     Dosage: UNK
     Dates: start: 20070101
  12. ALLOPURINOL [Concomitant]
     Dosage: 300 MG, QD
     Dates: start: 20070101, end: 20090621
  13. TRAVATAN [Concomitant]
     Dosage: UNK
     Dates: start: 20080101
  14. AZOPT [Concomitant]
     Dosage: UNK
     Dates: start: 20080101

REACTIONS (1)
  - HENOCH-SCHONLEIN PURPURA [None]
